FAERS Safety Report 21979198 (Version 1)
Quarter: 2023Q1

REPORT INFORMATION
  Report Type: Spontaneous
  Country: US (occurrence: None)
  Receive Date: 20230209
  Receipt Date: 20230209
  Transmission Date: 20230418
  Serious: Yes (Other)
  Sender: FDA-Public Use
  Company Number: None

PATIENT
  Age: 55 Year
  Sex: Female

DRUGS (4)
  1. TESTOSTERONE [Suspect]
     Active Substance: TESTOSTERONE
     Indication: Hormone replacement therapy
     Dosage: FREQUENCY : DAILY;?
     Route: 061
     Dates: start: 20220829
  2. Calcium 1200 mg OTC [Concomitant]
  3. Estriol/Estradiol 80/20 1.25mg/ml [Concomitant]
  4. Progesterone SR 100 mg capsule [Concomitant]

REACTIONS (1)
  - Blood testosterone increased [None]

NARRATIVE: CASE EVENT DATE: 20230127
